FAERS Safety Report 9881191 (Version 4)
Quarter: 2014Q2

REPORT INFORMATION
  Report Type: Spontaneous
  Country: JP (occurrence: JP)
  Receive Date: 20140207
  Receipt Date: 20140512
  Transmission Date: 20141212
  Serious: Yes (Hospitalization)
  Sender: FDA-Public Use
  Company Number: JP-TAKEDA-2014TJP001141

PATIENT
  Age: 80 Year
  Sex: Female
  Weight: 67 kg

DRUGS (4)
  1. NESINA TABLETS 12.5MG [Suspect]
     Indication: DIABETES MELLITUS
     Dosage: 12.5 MG, QD
     Route: 048
     Dates: start: 20131210, end: 20131224
  2. AIMIX HD(IRBESARTAN/AMLODIPINE BESILATE) [Concomitant]
     Dosage: 1 DF, QD
     Route: 048
     Dates: end: 20131224
  3. AROMASIN [Concomitant]
     Dosage: 25 MG,QD
     Route: 048
  4. CRAVIT [Concomitant]
     Dosage: UNK
     Route: 047

REACTIONS (2)
  - Erythema multiforme [Recovered/Resolved]
  - Drug eruption [Recovered/Resolved]
